FAERS Safety Report 5378554-0 (Version None)
Quarter: 2007Q3

REPORT INFORMATION
  Report Type: 
  Country: None (occurrence: None)
  Receive Date: 20070702
  Receipt Date: 20070615
  Transmission Date: 20080115
  Serious: Yes (Hospitalization)
  Sender: FDA-Public Use
  Company Number: 8024079

PATIENT
  Age: 16 Month
  Sex: Male
  Weight: 11 kg

DRUGS (1)
  1. KEPPRA [Suspect]
     Dosage: 500 MG ONCE PO
     Route: 048
     Dates: start: 20070513, end: 20070513

REACTIONS (5)
  - ACCIDENTAL DRUG INTAKE BY CHILD [None]
  - ALANINE AMINOTRANSFERASE INCREASED [None]
  - ASPARTATE AMINOTRANSFERASE INCREASED [None]
  - BLOOD CREATINE PHOSPHOKINASE INCREASED [None]
  - BLOOD LACTATE DEHYDROGENASE INCREASED [None]
